FAERS Safety Report 4828075-6 (Version None)
Quarter: 2005Q4

REPORT INFORMATION
  Report Type: 
  Country: None (occurrence: None)
  Receive Date: 20051110
  Receipt Date: 20051101
  Transmission Date: 20060501
  Serious: Yes (Other)
  Sender: FDA-Public Use
  Company Number: 2005150540

PATIENT
  Age: 45 Year
  Sex: Female

DRUGS (6)
  1. LYRICA [Suspect]
     Indication: NEURALGIA
     Dosage: 150 MG 75 MG, 2 IN 1 D), ORAL
     Route: 048
     Dates: start: 20051010, end: 20051011
  2. CHLORPHENIRAMINE (CHLORPHENIRAMINE) [Concomitant]
  3. LANSOPRAZOLE [Concomitant]
  4. DICLOFENAC SODIUM [Concomitant]
  5. FLUOXETINE [Concomitant]
  6. AMITRIPTYLINE HCL [Concomitant]

REACTIONS (8)
  - CHILLS [None]
  - COORDINATION ABNORMAL [None]
  - DIZZINESS [None]
  - FLUSHING [None]
  - HEADACHE [None]
  - HYPERHIDROSIS [None]
  - HYPERTENSION [None]
  - TACHYCARDIA [None]
